FAERS Safety Report 7996703-2 (Version None)
Quarter: 2011Q4

REPORT INFORMATION
  Report Type: 
  Country: None (occurrence: None)
  Receive Date: 20111221
  Receipt Date: 20111208
  Transmission Date: 20120403
  Serious: Yes (Hospitalization, Other)
  Sender: FDA-Public Use
  Company Number: US-ELI_LILLY_AND_COMPANY-US201112002837

PATIENT
  Sex: Female

DRUGS (6)
  1. NEXIUM [Concomitant]
     Dosage: UNK
  2. ASPIRIN [Concomitant]
     Dosage: UNK
  3. MULTI-VITAMIN [Concomitant]
     Dosage: UNK
  4. ALTACE [Concomitant]
     Dosage: UNK
  5. TRIAMTERENE AND HYDROCHLOROTHIAZID [Concomitant]
     Dosage: UNK
  6. FORTEO [Suspect]
     Indication: OSTEOPOROSIS
     Dosage: UNK UNK, QD

REACTIONS (4)
  - EMPHYSEMA [None]
  - PULMONARY THROMBOSIS [None]
  - MEMORY IMPAIRMENT [None]
  - INTENTIONAL DRUG MISUSE [None]
